FAERS Safety Report 24871518 (Version 1)
Quarter: 2025Q1

REPORT INFORMATION
  Report Type: Spontaneous
  Country: HR (occurrence: HR)
  Receive Date: 20250122
  Receipt Date: 20250122
  Transmission Date: 20250409
  Serious: Yes (Death)
  Sender: DECIPHERA PHARMACEUTICALS
  Company Number: HR-DECIPHERA PHARMACEUTICALS LLC-2025HR000019

PATIENT
  Sex: Male

DRUGS (1)
  1. QINLOCK [Suspect]
     Active Substance: RIPRETINIB
     Indication: Gastrointestinal stromal tumour
     Dosage: 150 MILLIGRAM, QD
     Route: 048
     Dates: start: 20241219

REACTIONS (3)
  - Malignant neoplasm progression [Fatal]
  - Hepatic failure [Fatal]
  - Renal failure [Fatal]
